FAERS Safety Report 22930358 (Version 5)
Quarter: 2024Q3

REPORT INFORMATION
  Report Type: Report from Study
  Country: US (occurrence: US)
  Receive Date: 20230911
  Receipt Date: 20240719
  Transmission Date: 20241017
  Serious: Yes (Disabling, Other)
  Sender: AMGEN
  Company Number: US-HORIZON THERAPEUTICS-HZN-2023-001551

PATIENT
  Age: 54 Year
  Sex: Female

DRUGS (50)
  1. TEPEZZA [Suspect]
     Active Substance: TEPROTUMUMAB-TRBW
     Indication: Endocrine ophthalmopathy
     Dosage: 900 MILLIGRAM, (FIRST INFUSION)
     Route: 042
     Dates: start: 20221227, end: 20221227
  2. TEPEZZA [Suspect]
     Active Substance: TEPROTUMUMAB-TRBW
     Indication: Graves^ disease
     Dosage: 1800 MILLIGRAM, (SECOND INFUSION)
     Route: 042
     Dates: start: 20230118, end: 20230118
  3. TEPEZZA [Suspect]
     Active Substance: TEPROTUMUMAB-TRBW
     Dosage: 1800 MILLIGRAM, (THIRD INFUSION)
     Route: 042
     Dates: start: 20230208, end: 20230208
  4. PREDNISONE [Suspect]
     Active Substance: PREDNISONE
     Indication: Product used for unknown indication
     Dosage: UNK, 10 MG
     Route: 065
  5. ALBUTEROL [Concomitant]
     Active Substance: ALBUTEROL
     Dosage: 2.5 MG/3ML
  6. PROBIOTICS NOS [Concomitant]
     Active Substance: PROBIOTICS NOS
  7. ACETAMINOPHEN [Concomitant]
     Active Substance: ACETAMINOPHEN
     Dosage: UNK
     Dates: start: 20221227
  8. VITAMIN D3 [Concomitant]
     Active Substance: CHOLECALCIFEROL
  9. VITAMIN E [Concomitant]
     Active Substance: .ALPHA.-TOCOPHEROL
  10. MOTRIN [Concomitant]
     Active Substance: IBUPROFEN
  11. SYNTHROID [Concomitant]
     Active Substance: LEVOTHYROXINE SODIUM
  12. TEMOVATE [Concomitant]
     Active Substance: CLOBETASOL PROPIONATE
  13. MICROZIDE [Concomitant]
     Active Substance: HYDROCHLOROTHIAZIDE
  14. COZAAR [Concomitant]
     Active Substance: LOSARTAN POTASSIUM
  15. CRESTOR [Concomitant]
     Active Substance: ROSUVASTATIN CALCIUM
  16. SINGULAIR [Concomitant]
     Active Substance: MONTELUKAST SODIUM
  17. FLONASE [Concomitant]
     Active Substance: FLUTICASONE PROPIONATE
  18. OXYGEN [Concomitant]
     Active Substance: OXYGEN
  19. HERBALS\TURMERIC [Concomitant]
     Active Substance: HERBALS\TURMERIC
  20. EPIPEN JR [Concomitant]
     Active Substance: EPINEPHRINE
     Dosage: 0.15 MG/0.3ML
  21. SOLU-MEDROL [Concomitant]
     Active Substance: METHYLPREDNISOLONE SODIUM SUCCINATE
  22. ZYRTEC [Concomitant]
     Active Substance: CETIRIZINE HYDROCHLORIDE
  23. CELEBREX [Concomitant]
     Active Substance: CELECOXIB
  24. SELENIUM [Concomitant]
     Active Substance: SELENIUM
     Route: 048
  25. OMEPRAZOLE [Concomitant]
     Active Substance: OMEPRAZOLE
     Dosage: UNK
     Route: 065
  26. ONDANSETRON [Concomitant]
     Active Substance: ONDANSETRON
     Dosage: UNK
     Route: 065
  27. AZITHROMYCIN [Concomitant]
     Active Substance: AZITHROMYCIN
     Dosage: UNK
     Route: 065
  28. DIAZEPAM [Concomitant]
     Active Substance: DIAZEPAM
     Dosage: UNK
     Route: 065
  29. LIOTHYRONINE SODIUM [Concomitant]
     Active Substance: LIOTHYRONINE SODIUM
     Dosage: UNK
     Route: 065
  30. LEVOFLOXACIN [Concomitant]
     Active Substance: LEVOFLOXACIN
     Dosage: UNK
     Route: 065
  31. METRONIDAZOLE [Concomitant]
     Active Substance: METRONIDAZOLE
     Dosage: UNK
     Route: 065
  32. MELOXICAM [Concomitant]
     Active Substance: MELOXICAM
     Dosage: UNK
     Route: 065
  33. TERBINAFINE [Concomitant]
     Active Substance: TERBINAFINE
     Dosage: UNK
     Route: 065
  34. LEVOCETIRIZINE [Concomitant]
     Active Substance: LEVOCETIRIZINE
     Dosage: UNK
     Route: 065
  35. AZELASTINE [Concomitant]
     Active Substance: AZELASTINE\AZELASTINE HYDROCHLORIDE
     Dosage: UNK
     Route: 065
  36. CIPROFLOXACIN [Concomitant]
     Active Substance: CIPROFLOXACIN
     Dosage: UNK
     Route: 065
  37. BENZONATATE [Concomitant]
     Active Substance: BENZONATATE
     Dosage: UNK
     Route: 065
  38. MECLIZINE [Concomitant]
     Active Substance: MECLIZINE HYDROCHLORIDE
  39. CEQUA [Concomitant]
     Active Substance: CYCLOSPORINE
     Dosage: UNK
     Route: 065
  40. AMOXICILLIN [Concomitant]
     Active Substance: AMOXICILLIN
     Dosage: UNK
     Route: 065
  41. HYDROCODONE [Concomitant]
     Active Substance: HYDROCODONE
     Dosage: UNK
     Route: 065
  42. TRAMADOL [Concomitant]
     Active Substance: TRAMADOL\TRAMADOL HYDROCHLORIDE
     Dosage: UNK
     Route: 065
  43. ESTRADIOL [Concomitant]
     Active Substance: ESTRADIOL
  44. SOLIFENACIN SUCCINATE [Concomitant]
     Active Substance: SOLIFENACIN SUCCINATE
     Dosage: UNK
     Route: 065
  45. LEVOTHYROXINE [Concomitant]
     Active Substance: LEVOTHYROXINE\LEVOTHYROXINE SODIUM
  46. METHYLPREDNISOLONE [Concomitant]
     Active Substance: METHYLPREDNISOLONE
     Dosage: 4MG
  47. MONTELUKAST [Concomitant]
     Active Substance: MONTELUKAST SODIUM
  48. FLUTICASONE [Concomitant]
     Active Substance: FLUTICASONE
  49. CELECOXIB [Concomitant]
     Active Substance: CELECOXIB
  50. LOSARTAN [Concomitant]
     Active Substance: LOSARTAN

REACTIONS (28)
  - Deafness permanent [Not Recovered/Not Resolved]
  - Physical disability [Unknown]
  - Disability [Unknown]
  - Dyspepsia [Unknown]
  - Taste disorder [Unknown]
  - Auditory disorder [Not Recovered/Not Resolved]
  - Epistaxis [Unknown]
  - Abdominal pain [Unknown]
  - Muscle spasms [Unknown]
  - Tinnitus [Not Recovered/Not Resolved]
  - Fatigue [Unknown]
  - Pain [Unknown]
  - Injury [Unknown]
  - Anxiety [Unknown]
  - Concomitant disease aggravated [Unknown]
  - Discomfort [Unknown]
  - Quality of life decreased [Not Recovered/Not Resolved]
  - Emotional distress [Not Recovered/Not Resolved]
  - Blood pressure increased [Unknown]
  - Ear infection [Unknown]
  - Excessive cerumen production [Unknown]
  - Haemorrhoids [Unknown]
  - Dizziness [Unknown]
  - Otorrhoea [Unknown]
  - Economic problem [Not Recovered/Not Resolved]
  - Dry mouth [Unknown]
  - Sinus disorder [Unknown]
  - Palpitations [Unknown]

NARRATIVE: CASE EVENT DATE: 20240301
